FAERS Safety Report 5893165-6 (Version None)
Quarter: 2008Q3

REPORT INFORMATION
  Report Type: 
  Country: None (occurrence: None)
  Receive Date: 20080923
  Receipt Date: 20070904
  Transmission Date: 20090109
  Serious: No
  Sender: FDA-Public Use
  Company Number: US-ASTRAZENECA-2007UW20831

PATIENT
  Age: 47 Year
  Sex: Male
  Weight: 97.5 kg

DRUGS (3)
  1. SEROQUEL [Suspect]
     Indication: DEPRESSION
     Dosage: FOR 6 WEEKS
     Route: 048
     Dates: start: 20070701
  2. ST. JOHN'S WART [Concomitant]
  3. MULTI-VIT [Concomitant]

REACTIONS (1)
  - ALOPECIA [None]
